FAERS Safety Report 20431081 (Version 1)
Quarter: 2022Q1

REPORT INFORMATION
  Report Type: Report from Study
  Country: US (occurrence: US)
  Receive Date: 20220204
  Receipt Date: 20220204
  Transmission Date: 20220423
  Serious: Yes (Hospitalization)
  Sender: FDA-Public Use
  Company Number: None

PATIENT

DRUGS (8)
  1. PEGASPARGASE [Suspect]
     Active Substance: PEGASPARGASE
     Indication: B precursor type acute leukaemia
     Dosage: 3750 IU, ONE DOSE ON D4
     Route: 042
     Dates: start: 20200222, end: 20200222
  2. CYTARABINE [Suspect]
     Active Substance: CYTARABINE
     Indication: B precursor type acute leukaemia
     Dosage: 70 MG, ONE DOSE
     Route: 037
     Dates: start: 20200218, end: 20200218
  3. DAUNORUBICIN HYDROCHLORIDE [Suspect]
     Active Substance: DAUNORUBICIN HYDROCHLORIDE
     Indication: Acute lymphocytic leukaemia
     Dosage: 60 MG, ONE DOSE
     Route: 065
     Dates: start: 20200219, end: 20200219
  4. DEXAMETHASONE [Suspect]
     Active Substance: DEXAMETHASONE
     Indication: Acute lymphocytic leukaemia
     Dosage: UNK
     Dates: start: 20200219, end: 20200225
  5. VINCRISTINE SULFATE [Suspect]
     Active Substance: VINCRISTINE SULFATE
     Indication: Acute lymphocytic leukaemia
     Dosage: 2 MG, ONE DOSE
     Route: 065
     Dates: start: 20200219, end: 20200219
  6. VINCRISTINE SULFATE [Suspect]
     Active Substance: VINCRISTINE SULFATE
     Dosage: 2 MG  ON DAYS 1,11,21,31,41
     Route: 042
     Dates: start: 20200605, end: 20200706
  7. TN UNSPECIFIED [Concomitant]
     Indication: B precursor type acute leukaemia
     Dosage: 310 MG ON DAYS 1, 11, 21, 31, 41
     Route: 065
     Dates: start: 20200526, end: 20200706
  8. TN UNSPECIFIED [Concomitant]
     Dosage: UNK ON DAY 1 AND 31
     Route: 037
     Dates: start: 20200526

REACTIONS (14)
  - Acute coronary syndrome [Recovered/Resolved]
  - Pulmonary embolism [Recovered/Resolved]
  - Stress cardiomyopathy [Unknown]
  - Pulmonary infarction [Unknown]
  - Chest pain [Recovered/Resolved]
  - Blood lactic acid decreased [Unknown]
  - Metabolic acidosis [Unknown]
  - Troponin T increased [Recovered/Resolved]
  - Myocardial ischaemia [Unknown]
  - Electrocardiogram ST segment elevation [Unknown]
  - Blood fibrinogen decreased [Unknown]
  - Ventricular hypokinesia [Unknown]
  - Soft tissue necrosis [Unknown]
  - Pain [Unknown]

NARRATIVE: CASE EVENT DATE: 20200101
